FAERS Safety Report 6756524-5 (Version None)
Quarter: 2010Q2

REPORT INFORMATION
  Report Type: 
  Country: None (occurrence: None)
  Receive Date: 20100604
  Receipt Date: 20100526
  Transmission Date: 20101027
  Serious: Yes (Hospitalization)
  Sender: FDA-Public Use
  Company Number: B0658723A

PATIENT
  Age: 32 Year
  Sex: Male

DRUGS (12)
  1. CEFUROXIME AXETIL [Suspect]
     Indication: PULMONARY FUNCTION TEST ABNORMAL
     Dosage: 500MG TWICE PER DAY
     Route: 048
     Dates: start: 20100327, end: 20100329
  2. REVATIO [Suspect]
     Indication: THROMBOTIC MICROANGIOPATHY
     Dosage: 20MG PER DAY
     Route: 048
     Dates: start: 20100322, end: 20100327
  3. NEURONTIN [Suspect]
     Dosage: 300MG THREE TIMES PER DAY
     Route: 048
     Dates: start: 20100308, end: 20100329
  4. ILOMEDINE [Suspect]
     Indication: DRUG USE FOR UNKNOWN INDICATION
     Route: 042
     Dates: start: 20100311, end: 20100327
  5. OXYCONTIN [Concomitant]
     Indication: PAIN
     Dosage: 50MG TWICE PER DAY
     Route: 048
     Dates: start: 20100325
  6. PRAVASTATIN [Concomitant]
     Indication: THROMBOTIC MICROANGIOPATHY
     Dosage: 40MG PER DAY
     Route: 048
  7. OMEPRAZOLE [Concomitant]
     Route: 048
  8. PROGRAF [Concomitant]
     Dosage: 4.5MG TWICE PER DAY
     Route: 065
  9. PREDNISONE TAB [Concomitant]
     Dosage: 5MG PER DAY
     Route: 065
  10. CELLCEPT [Concomitant]
     Dosage: 500MG TWICE PER DAY
     Route: 065
  11. ASPIRIN [Concomitant]
     Route: 065
  12. AMOXICILLIN AND CLAVULANATE POTASSIUM [Concomitant]

REACTIONS (1)
  - MIXED LIVER INJURY [None]
